FAERS Safety Report 10064472 (Version 2)
Quarter: 2014Q2

REPORT INFORMATION
  Report Type: Other
  Country: FR (occurrence: FR)
  Receive Date: 20140408
  Receipt Date: 20140421
  Transmission Date: 20141212
  Serious: Yes (Hospitalization, Other)
  Sender: FDA-Public Use
  Company Number: FR-MPIJNJ-2014JNJ001056

PATIENT
  Sex: 0

DRUGS (3)
  1. VELCADE [Suspect]
     Indication: PLASMA CELL MYELOMA
     Dosage: 2.2 MG, UNK
     Route: 058
     Dates: start: 20121120
  2. DEXAMETHASONE [Concomitant]
     Indication: PLASMA CELL MYELOMA
  3. REVLIMID [Concomitant]
     Indication: PLASMA CELL MYELOMA

REACTIONS (1)
  - Squamous cell carcinoma of the hypopharynx [Not Recovered/Not Resolved]
